FAERS Safety Report 22161661 (Version 3)
Quarter: 2023Q2

REPORT INFORMATION
  Report Type: Spontaneous
  Country: PL (occurrence: PL)
  Receive Date: 20230331
  Receipt Date: 20230502
  Transmission Date: 20230722
  Serious: Yes (Other)
  Sender: FDA-Public Use
  Company Number: PL-MLMSERVICE-20230317-4124033-1

PATIENT
  Age: 4 Year
  Sex: Male

DRUGS (8)
  1. CYTARABINE [Suspect]
     Active Substance: CYTARABINE
     Indication: T-cell type acute leukaemia
     Dosage: UNK
  2. ASPARAGINASE [Suspect]
     Active Substance: ASPARAGINASE
     Indication: T-cell type acute leukaemia
     Dosage: UNK
  3. DAUNORUBICIN [Suspect]
     Active Substance: DAUNORUBICIN
     Indication: T-cell type acute leukaemia
     Dosage: UNK
  4. MERCAPTOPURINE [Suspect]
     Active Substance: MERCAPTOPURINE
     Indication: T-cell type acute leukaemia
     Dosage: UNK
  5. CYCLOPHOSPHAMIDE [Suspect]
     Active Substance: CYCLOPHOSPHAMIDE
     Indication: T-cell type acute leukaemia
     Dosage: UNK
  6. PREDNISONE [Suspect]
     Active Substance: PREDNISONE
     Indication: T-cell type acute leukaemia
     Dosage: UNK
  7. VINCRISTINE [Suspect]
     Active Substance: VINCRISTINE
     Indication: T-cell type acute leukaemia
     Dosage: UNK
  8. METHOTREXATE [Suspect]
     Active Substance: METHOTREXATE
     Indication: T-cell type acute leukaemia
     Dosage: UNK

REACTIONS (2)
  - Respiratory tract infection [Unknown]
  - Neutropenia [Unknown]
